FAERS Safety Report 17911483 (Version 1)
Quarter: 2020Q2

REPORT INFORMATION
  Report Type: Spontaneous
  Country: DE (occurrence: DE)
  Receive Date: 20200618
  Receipt Date: 20200618
  Transmission Date: 20200714
  Serious: Yes (Hospitalization)
  Sender: FDA-Public Use
  Company Number: NVSC2020DE169393

PATIENT
  Age: 76 Year
  Sex: Male

DRUGS (4)
  1. URAPIDIL [Concomitant]
     Active Substance: URAPIDIL
     Indication: PRODUCT USED FOR UNKNOWN INDICATION
     Dosage: 60 MG, Q12H
     Route: 065
  2. METOPROLOL. [Concomitant]
     Active Substance: METOPROLOL
     Indication: PRODUCT USED FOR UNKNOWN INDICATION
     Dosage: 95 MG, Q12H
     Route: 065
  3. AMLODIPIN [Suspect]
     Active Substance: AMLODIPINE BESYLATE
     Indication: PRODUCT USED FOR UNKNOWN INDICATION
     Dosage: 5 MG, Q12H
     Route: 065
  4. PHENPROCOUMON [Suspect]
     Active Substance: PHENPROCOUMON
     Indication: PRODUCT USED FOR UNKNOWN INDICATION
     Dosage: 3 MG
     Route: 065

REACTIONS (7)
  - Pallor [Unknown]
  - Oedema peripheral [Unknown]
  - Dyspnoea [Unknown]
  - Anaemia [Unknown]
  - General physical health deterioration [Unknown]
  - Accidental overdose [Unknown]
  - Dyspnoea exertional [Unknown]
